FAERS Safety Report 5597221-1 (Version None)
Quarter: 2008Q1

REPORT INFORMATION
  Report Type: 
  Country: None (occurrence: None)
  Receive Date: 20080121
  Receipt Date: 20080114
  Transmission Date: 20080703
  Serious: Yes (Hospitalization)
  Sender: FDA-Public Use
  Company Number: PHBS2007US17801

PATIENT
  Age: 19 Year
  Sex: Male

DRUGS (2)
  1. LIORESAL [Suspect]
     Indication: MUSCLE SPASTICITY
     Dosage: 800 UG/DAY
     Route: 039
  2. LIORESAL [Suspect]
     Dosage: 1100 UG/DAY
     Route: 037

REACTIONS (2)
  - DRUG INEFFECTIVE [None]
  - MUSCLE SPASTICITY [None]
